FAERS Safety Report 10024105 (Version 1)
Quarter: 2014Q1

REPORT INFORMATION
  Report Type: Spontaneous
  Country: US (occurrence: US)
  Receive Date: 20140320
  Receipt Date: 20140320
  Transmission Date: 20141002
  Serious: No
  Sender: FDA-Public Use
  Company Number: US-PFIZER INC-2014077830

PATIENT
  Age: 60 Year
  Sex: Male

DRUGS (1)
  1. RAPAMUNE [Suspect]
     Dosage: 1 MG, 3 ONE DAY AND 2 THE NEXT, ALTERNATING
     Dates: start: 20100108

REACTIONS (2)
  - Weight increased [Unknown]
  - Blood cholesterol increased [Unknown]
